FAERS Safety Report 13177376 (Version 1)
Quarter: 2017Q1

REPORT INFORMATION
  Report Type: Report from Study
  Country: US (occurrence: US)
  Receive Date: 20170201
  Receipt Date: 20170201
  Transmission Date: 20170428
  Serious: Yes (Other)
  Sender: FDA-Public Use
  Company Number: US-EXELIXIS-CABO-16006023

PATIENT
  Sex: Male

DRUGS (15)
  1. COMETRIQ [Suspect]
     Active Substance: CABOZANTINIB S-MALATE
     Dosage: 40 MG, QD
     Route: 048
     Dates: start: 20160318
  2. TRAMADOL. [Concomitant]
     Active Substance: TRAMADOL
  3. ALLOPURINOL. [Concomitant]
     Active Substance: ALLOPURINOL
  4. COUMADIN [Concomitant]
     Active Substance: WARFARIN SODIUM
  5. NEUPOGEN [Concomitant]
     Active Substance: FILGRASTIM
  6. LIDOCAINE. [Concomitant]
     Active Substance: LIDOCAINE
  7. AMOXICILLIN. [Concomitant]
     Active Substance: AMOXICILLIN
  8. VICODIN [Concomitant]
     Active Substance: ACETAMINOPHEN\HYDROCODONE BITARTRATE
  9. METOPROLOL. [Concomitant]
     Active Substance: METOPROLOL
  10. COMETRIQ [Suspect]
     Active Substance: CABOZANTINIB S-MALATE
     Indication: RENAL CANCER
     Dosage: 60 MG, QD
     Route: 048
     Dates: start: 20160113, end: 20160317
  11. CALCITRIOL. [Concomitant]
     Active Substance: CALCITRIOL
  12. NYSTATIN. [Concomitant]
     Active Substance: NYSTATIN
  13. NORVASC [Concomitant]
     Active Substance: AMLODIPINE BESYLATE
  14. VITAMIN D [Concomitant]
     Active Substance: CHOLECALCIFEROL
  15. LISINOPRIL. [Concomitant]
     Active Substance: LISINOPRIL

REACTIONS (9)
  - Oral pain [Recovering/Resolving]
  - Drug dose omission [Unknown]
  - Pain in extremity [Not Recovered/Not Resolved]
  - Diarrhoea [Not Recovered/Not Resolved]
  - Skin atrophy [Unknown]
  - Muscle spasms [Unknown]
  - Off label use [Unknown]
  - Blood pressure increased [Not Recovered/Not Resolved]
  - Dizziness [Unknown]
